FAERS Safety Report 19417676 (Version 1)
Quarter: 2021Q2

REPORT INFORMATION
  Report Type: Spontaneous
  Country: US (occurrence: US)
  Receive Date: 20210615
  Receipt Date: 20210615
  Transmission Date: 20210717
  Serious: Yes (Other)
  Sender: FDA-Public Use
  Company Number: US-UNITED THERAPEUTICS-UNT-2021-010761

PATIENT
  Age: 61 Year
  Sex: Female

DRUGS (2)
  1. REMODULIN [Suspect]
     Active Substance: TREPROSTINIL
     Dosage: 0.0985 ?G/KG, CONTINUING (INFUSION RATE: 0.036 ML/HR)
     Route: 058
  2. REMODULIN [Suspect]
     Active Substance: TREPROSTINIL
     Indication: PULMONARY ARTERIAL HYPERTENSION
     Dosage: UNK, CONTINUING
     Route: 058
     Dates: start: 20190607

REACTIONS (5)
  - Seizure [Unknown]
  - Weight decreased [Unknown]
  - Oedema [Unknown]
  - Infection [Unknown]
  - Weight gain poor [Unknown]

NARRATIVE: CASE EVENT DATE: 20210606
